FAERS Safety Report 10760963 (Version 1)
Quarter: 2015Q1

REPORT INFORMATION
  Report Type: Spontaneous
  Country: US (occurrence: None)
  Receive Date: 20150203
  Receipt Date: 20150203
  Transmission Date: 20150721
  Serious: Yes (Other)
  Sender: FDA-Public Use
  Company Number: None

PATIENT
  Age: 42 Year
  Sex: Female
  Weight: 50.35 kg

DRUGS (1)
  1. METHOREXATE [Suspect]
     Active Substance: METHOTREXATE SODIUM
     Indication: RHEUMATOID ARTHRITIS
     Dosage: .8 CC, WEEKLY, GIVEN INTO/UNDER THE SKIN
     Dates: start: 20150117, end: 20150202

REACTIONS (2)
  - Eye swelling [None]
  - Sneezing [None]

NARRATIVE: CASE EVENT DATE: 20150123
